FAERS Safety Report 7933059-5 (Version None)
Quarter: 2011Q4

REPORT INFORMATION
  Report Type: 
  Country: None (occurrence: None)
  Receive Date: 20111122
  Receipt Date: 20111117
  Transmission Date: 20120403
  Serious: Yes (Hospitalization, Congenital Anomaly)
  Sender: FDA-Public Use
  Company Number: GXKR2011DE003347

PATIENT

DRUGS (3)
  1. BROMOCRIPTINE MESYLATE [Suspect]
     Dosage: MOTHER DOSE: 2.5 [MG/D ]
     Route: 064
     Dates: end: 20110502
  2. ACETAMINOPHEN [Concomitant]
     Dosage: MOTHER DOSE: 500 [MG/D ]/ ONCE
     Route: 064
  3. FOLIC ACID [Concomitant]
     Dosage: MOTHER DOSE: 4 [MG/D ]
     Route: 064

REACTIONS (6)
  - NEONATAL RESPIRATORY DEPRESSION [None]
  - ULTRASOUND KIDNEY ABNORMAL [None]
  - RHABDOMYOMA [None]
  - ATRIAL SEPTAL DEFECT [None]
  - MYOCLONUS [None]
  - FOETAL EXPOSURE DURING PREGNANCY [None]
